FAERS Safety Report 18231907 (Version 1)
Quarter: 2020Q3

REPORT INFORMATION
  Report Type: Spontaneous
  Country: US (occurrence: US)
  Receive Date: 20200903
  Receipt Date: 20200903
  Transmission Date: 20201103
  Serious: Yes (Hospitalization)
  Sender: FDA-Public Use
  Company Number: None

PATIENT
  Sex: Male

DRUGS (15)
  1. CLOPIDOGREL [Concomitant]
     Active Substance: CLOPIDOGREL BISULFATE
  2. DRONABINOL. [Concomitant]
     Active Substance: DRONABINOL
  3. FULPHILA [Suspect]
     Active Substance: PEGFILGRASTIM-JMDB
     Indication: AGRANULOCYTOSIS
     Route: 058
     Dates: start: 20200805
  4. ATORVASTATIN [Concomitant]
     Active Substance: ATORVASTATIN
  5. METOCLOPRAM [Concomitant]
     Active Substance: METOCLOPRAMIDE
  6. PROMETHAZINE [Concomitant]
     Active Substance: PROMETHAZINE HYDROCHLORIDE
  7. ENOXAPARIN [Concomitant]
     Active Substance: ENOXAPARIN
  8. METOPROL SUC [Concomitant]
  9. ONDANSETRON [Concomitant]
     Active Substance: ONDANSETRON
  10. ZOLPIDEM [Concomitant]
     Active Substance: ZOLPIDEM TARTRATE
  11. ENALAPRIL [Concomitant]
     Active Substance: ENALAPRIL
  12. HYDROMORPHON [Concomitant]
     Active Substance: HYDROMORPHONE
  13. MORPHINE SUL [Concomitant]
     Active Substance: MORPHINE SULFATE
  14. HYDROCO/APAP [Concomitant]
     Active Substance: ACETAMINOPHEN\HYDROCODONE
  15. MELOXICAM. [Concomitant]
     Active Substance: MELOXICAM

REACTIONS (3)
  - Colitis [None]
  - Diarrhoea [None]
  - Gastrointestinal disorder [None]
